FAERS Safety Report 21141164 (Version 3)
Quarter: 2023Q1

REPORT INFORMATION
  Report Type: Spontaneous
  Country: US (occurrence: US)
  Receive Date: 20220728
  Receipt Date: 20230124
  Transmission Date: 20230418
  Serious: Yes (Other)
  Sender: FDA-Public Use
  Company Number: US-IGSA-BIG0019764

PATIENT
  Age: 64 Year
  Sex: Female
  Weight: 109 kg

DRUGS (49)
  1. XEMBIFY [Suspect]
     Active Substance: HUMAN IMMUNOGLOBULIN G
     Indication: Hypogammaglobulinaemia
     Dosage: 80 MILLILITER, Q.WK.
     Route: 058
     Dates: start: 202101
  2. DUPIXENT [Suspect]
     Active Substance: DUPILUMAB
     Indication: Hypogammaglobulinaemia
     Dosage: 200 MILLIGRAM, Q.O.WK.
     Route: 058
  3. DUPIXENT [Suspect]
     Active Substance: DUPILUMAB
     Indication: Asthma
  4. DUPIXENT [Suspect]
     Active Substance: DUPILUMAB
     Indication: Asthma
  5. DUPIXENT [Suspect]
     Active Substance: DUPILUMAB
     Indication: Asthma
  6. LIDOCAINE [Concomitant]
     Active Substance: LIDOCAINE
     Indication: Pain
  7. EPINEPHRINE [Concomitant]
     Active Substance: EPINEPHRINE
  8. DIPHENHYDRAMINE [Concomitant]
     Active Substance: DIPHENHYDRAMINE
  9. ACETAMINOPHEN [Concomitant]
     Active Substance: ACETAMINOPHEN
     Indication: Pain
  10. ACETAMINOPHEN [Concomitant]
     Active Substance: ACETAMINOPHEN
     Indication: Premedication
  11. MUCINEX [Concomitant]
     Active Substance: GUAIFENESIN
  12. ALGELDRATE [Concomitant]
     Active Substance: ALGELDRATE
  13. ALGINIC ACID [Concomitant]
     Active Substance: ALGINIC ACID
  14. MAGNESIUM TRISILICATE [Concomitant]
     Active Substance: MAGNESIUM TRISILICATE
  15. GAVISCON [ALGELDRATE;ALGINIC ACID;MAGNESIUM TRISILICATE;SODIUM BICARBO [Concomitant]
  16. CHONDROITIN SULFATE (CHICKEN) [Concomitant]
     Active Substance: CHONDROITIN SULFATE (CHICKEN)
  17. GLUCOSAMINE HYDROCHLORIDE [Concomitant]
     Active Substance: GLUCOSAMINE HYDROCHLORIDE
  18. MANGANESE GLUCONATE [Concomitant]
     Active Substance: MANGANESE GLUCONATE
  19. SODIUM BORATE DECAHYDRATE [Concomitant]
  20. ALBUTEROL SULFATE [Concomitant]
     Active Substance: ALBUTEROL SULFATE
     Indication: Asthma
  21. RELPAX [Concomitant]
     Active Substance: ELETRIPTAN HYDROBROMIDE
  22. AMLODIPINE BESYLATE [Concomitant]
     Active Substance: AMLODIPINE BESYLATE
  23. CALCIUM [Concomitant]
     Active Substance: CALCIUM
  24. VITAMINS NOS [Concomitant]
     Active Substance: VITAMINS
  25. PROBIOTIC ACIDOPHILUS [LACTOBACILLUS ACIDOPHILUS] [Concomitant]
  26. LEVALBUTEROL HYDROCHLORIDE [Concomitant]
     Active Substance: LEVALBUTEROL HYDROCHLORIDE
  27. ADVAIR HFA [Concomitant]
     Active Substance: FLUTICASONE PROPIONATE\SALMETEROL XINAFOATE
  28. SIMVASTATIN [Concomitant]
     Active Substance: SIMVASTATIN
  29. EFFEXOR XR [Concomitant]
     Active Substance: VENLAFAXINE HYDROCHLORIDE
     Indication: Pain
  30. OMEPRAZOLE [Concomitant]
     Active Substance: OMEPRAZOLE
  31. TOPIRAMATE [Concomitant]
     Active Substance: TOPIRAMATE
     Indication: Pain
  32. PRIMIDONE [Concomitant]
     Active Substance: PRIMIDONE
  33. LEVOTHYROXINE SODIUM [Concomitant]
     Active Substance: LEVOTHYROXINE SODIUM
  34. MELOXICAM [Concomitant]
     Active Substance: MELOXICAM
  35. TRAMADOL HCL [Concomitant]
     Active Substance: TRAMADOL HYDROCHLORIDE
  36. GRAMICIDIN\NEOMYCIN SULFATE\POLYMYXIN B SULFATE [Concomitant]
     Active Substance: GRAMICIDIN\NEOMYCIN SULFATE\POLYMYXIN B SULFATE
  37. DELSYM [Concomitant]
     Active Substance: DEXTROMETHORPHAN
  38. ALGELDRATE\SODIUM ALGINATE [Concomitant]
     Active Substance: ALGELDRATE\SODIUM ALGINATE
  39. OCUVITE [ASCORBIC ACID;RETINOL;TOCOPHEROL] [Concomitant]
  40. VITAMIN D3 [Concomitant]
     Active Substance: CHOLECALCIFEROL
  41. VITAMIN B12 [Concomitant]
     Active Substance: CYANOCOBALAMIN
  42. ALBUTEROL\IPRATROPIUM [Concomitant]
     Active Substance: ALBUTEROL\IPRATROPIUM
  43. AZITHROMYCIN [Concomitant]
     Active Substance: AZITHROMYCIN
  44. EFFEXOR [Concomitant]
     Active Substance: VENLAFAXINE HYDROCHLORIDE
  45. SINGULAIR [Concomitant]
     Active Substance: MONTELUKAST SODIUM
  46. NEOSPORIN+PAIN RELIEF [BACITRACIN ZINC;NEOMYCIN;POLYMYXIN B SULFATE;PR [Concomitant]
  47. LACTOBACILLUS ACIDOPHILUS [Concomitant]
     Active Substance: LACTOBACILLUS ACIDOPHILUS
  48. B COMPLEX WITH VITAMIN C [ASCORBIC ACID;CALCIUM PANTOTHENATE;NICOTINAM [Concomitant]
  49. BENADRYL [Concomitant]
     Active Substance: DIPHENHYDRAMINE HYDROCHLORIDE
     Indication: Premedication

REACTIONS (6)
  - Infusion site vesicles [Recovered/Resolved]
  - Blood blister [Recovered/Resolved]
  - Infusion site ulcer [Recovered/Resolved]
  - Wound secretion [Recovered/Resolved]
  - Scar [Recovering/Resolving]
  - Purulent discharge [Recovered/Resolved]

NARRATIVE: CASE EVENT DATE: 20211201
